FAERS Safety Report 23367746 (Version 3)
Quarter: 2024Q1

REPORT INFORMATION
  Report Type: Report from Study
  Country: IT (occurrence: IT)
  Receive Date: 20240104
  Receipt Date: 20240227
  Transmission Date: 20240410
  Serious: Yes (Death, Hospitalization, Other)
  Sender: FDA-Public Use
  Company Number: IT-ABBVIE-5570001

PATIENT
  Age: 75 Year
  Sex: Male

DRUGS (2)
  1. CARBIDOPA\LEVODOPA [Suspect]
     Active Substance: CARBIDOPA\LEVODOPA
     Indication: Parkinson^s disease
     Dosage: DAILY DOSE (MG): 1.720; PUMP SETTING: MD: 5+3 CR: 5 (14H), ED: 5,5
     Route: 050
     Dates: start: 20190917
  2. CARBIDOPA\LEVODOPA [Suspect]
     Active Substance: CARBIDOPA\LEVODOPA

REACTIONS (6)
  - Fall [Recovering/Resolving]
  - Sepsis [Fatal]
  - Renal injury [Recovering/Resolving]
  - General physical health deterioration [Fatal]
  - Renal haemorrhage [Recovering/Resolving]
  - Clostridial infection [Recovered/Resolved]

NARRATIVE: CASE EVENT DATE: 20231208
